FAERS Safety Report 13360792 (Version 1)
Quarter: 2017Q1

REPORT INFORMATION
  Report Type: Spontaneous
  Country: US (occurrence: US)
  Receive Date: 20170322
  Receipt Date: 20170322
  Transmission Date: 20170429
  Serious: No
  Sender: FDA-Public Use
  Company Number: US-B.I. PHARMACEUTICALS,INC./RIDGEFIELD-2017-BI-015754

PATIENT
  Age: 64 Year
  Sex: Male

DRUGS (3)
  1. MICARDIS [Suspect]
     Active Substance: TELMISARTAN
     Indication: HYPERTENSION
     Dosage: ONCE DAILY;  FORM STRENGTH: 80 MG; FORMULATION: TABLET? ADMINISTRATION CORRECT? YES ?ACTION(S) TAKEN
     Route: 048
     Dates: start: 2011, end: 201607
  2. GENERIC TELMISARTAN [Concomitant]
     Indication: HYPERTENSION
     Dosage: ONCE DAILY;  FORM STRENGTH: 80MG; FORMULATION: TABLET
     Route: 048
     Dates: start: 201608
  3. CARVEDILOL. [Concomitant]
     Active Substance: CARVEDILOL
     Indication: PRODUCT USED FOR UNKNOWN INDICATION
     Dosage: TWICE DAILY;  FORM STRENGTH: 25MG; FORMULATION: TABLET
     Route: 048

REACTIONS (2)
  - Visual impairment [Not Recovered/Not Resolved]
  - Labile blood pressure [Recovered/Resolved]

NARRATIVE: CASE EVENT DATE: 201608
